FAERS Safety Report 4597852-1 (Version None)
Quarter: 2005Q1

REPORT INFORMATION
  Report Type: 
  Country: None (occurrence: None)
  Receive Date: 20050301
  Receipt Date: 20050215
  Transmission Date: 20050727
  Serious: Yes (Life-Threatening)
  Sender: FDA-Public Use
  Company Number: MK200502-0163-1

PATIENT
  Age: 64 Year
  Sex: Female

DRUGS (3)
  1. OPTIRAY 350 [Suspect]
     Indication: AORTOGRAM
     Dosage: 130 ML, 15 TIMES, IA
     Route: 014
     Dates: start: 20050214, end: 20050214
  2. OPTIRAY 350 [Suspect]
     Indication: ARTERIOGRAM CORONARY
     Dosage: 130 ML, 15 TIMES, IA
     Route: 014
     Dates: start: 20050214, end: 20050214
  3. MEXILETINE HYDROCHLORIDE [Concomitant]

REACTIONS (4)
  - CONTRAST MEDIA REACTION [None]
  - POST PROCEDURAL COMPLICATION [None]
  - VENTRICULAR FIBRILLATION [None]
  - VENTRICULAR TACHYCARDIA [None]
